FAERS Safety Report 7316089-6 (Version None)
Quarter: 2011Q1

REPORT INFORMATION
  Report Type: 
  Country: None (occurrence: None)
  Receive Date: 20110225
  Receipt Date: 20110221
  Transmission Date: 20110831
  Serious: Yes (Death, Other)
  Sender: FDA-Public Use
  Company Number: US-ELI_LILLY_AND_COMPANY-US201006004754

PATIENT
  Age: 80 Year
  Sex: Male

DRUGS (1)
  1. FORTEO [Suspect]
     Indication: OSTEOPOROSIS
     Dosage: UNK, UNKNOWN
     Route: 065

REACTIONS (5)
  - CARDIAC FAILURE CONGESTIVE [None]
  - CARDIOMYOPATHY [None]
  - ARRHYTHMIA [None]
  - MYOCARDIAL ISCHAEMIA [None]
  - CONSTIPATION [None]
